FAERS Safety Report 23778446 (Version 1)
Quarter: 2024Q2

REPORT INFORMATION
  Report Type: Spontaneous
  Country: US (occurrence: US)
  Receive Date: 20240424
  Receipt Date: 20240424
  Transmission Date: 20240716
  Serious: No
  Sender: FDA-Public Use
  Company Number: US-BAYER-2024A060749

PATIENT
  Age: 80 Year
  Sex: Male

DRUGS (2)
  1. CLARITIN [Suspect]
     Active Substance: LORATADINE
     Indication: Hypersensitivity
     Dosage: 1 DF, QD
     Route: 048
     Dates: start: 2023, end: 2024
  2. CLARITIN [Suspect]
     Active Substance: LORATADINE
     Indication: Nasopharyngitis

REACTIONS (2)
  - Hypoaesthesia [Recovered/Resolved]
  - Formication [Recovered/Resolved]

NARRATIVE: CASE EVENT DATE: 20230101
